FAERS Safety Report 5799065-4 (Version None)
Quarter: 2008Q3

REPORT INFORMATION
  Report Type: 
  Country: None (occurrence: None)
  Receive Date: 20080701
  Receipt Date: 20080620
  Transmission Date: 20090109
  Serious: Yes (Hospitalization)
  Sender: FDA-Public Use
  Company Number: VNL_01144_2008

PATIENT
  Age: 74 Year
  Sex: Female

DRUGS (1)
  1. APOKYN [Suspect]
     Indication: PARKINSON'S DISEASE
     Dosage: (0.25 ML SUBCUTANEOUS)
     Route: 058
     Dates: start: 20080101

REACTIONS (4)
  - DYSPNOEA [None]
  - FREEZING PHENOMENON [None]
  - JOINT SWELLING [None]
  - PELVIC FRACTURE [None]
